FAERS Safety Report 9998943 (Version 1)
Quarter: 2014Q1

REPORT INFORMATION
  Report Type: Spontaneous
  Country: US (occurrence: None)
  Receive Date: 20140310
  Receipt Date: 20140310
  Transmission Date: 20141002
  Serious: Yes (Hospitalization)
  Sender: FDA-Public Use
  Company Number: 2014P1001858

PATIENT
  Age: 60 Year
  Sex: Female

DRUGS (2)
  1. MITOMYCIN [Suspect]
     Indication: ANAL SQUAMOUS CELL CARCINOMA
     Route: 042
  2. FLUOROURACIL [Concomitant]

REACTIONS (3)
  - Thrombotic thrombocytopenic purpura [None]
  - Renal failure acute [None]
  - Hypertension [None]
